FAERS Safety Report 19666672 (Version 2)
Quarter: 2021Q3

REPORT INFORMATION
  Report Type: Report from Study
  Country: CA (occurrence: CA)
  Receive Date: 20210806
  Receipt Date: 20210816
  Transmission Date: 20211014
  Serious: Yes (Hospitalization)
  Sender: FDA-Public Use
  Company Number: CA-CHIESI-2021CHF03811

PATIENT
  Sex: Male
  Weight: 28.4 kg

DRUGS (1)
  1. DEFERIPRONE [Suspect]
     Active Substance: DEFERIPRONE
     Indication: THALASSAEMIA
     Dosage: UNK, TID
     Route: 048

REACTIONS (2)
  - Dyspnoea [Recovered/Resolved]
  - Pericarditis [Recovered/Resolved]
